FAERS Safety Report 8607755-0 (Version None)
Quarter: 2012Q3

REPORT INFORMATION
  Report Type: 
  Country: None (occurrence: None)
  Receive Date: 20120821
  Receipt Date: 20120814
  Transmission Date: 20120928
  Serious: Yes (Other)
  Sender: FDA-Public Use
  Company Number: PHEH2012US015685

PATIENT
  Sex: Male

DRUGS (11)
  1. FISH OIL [Concomitant]
  2. GLEEVEC [Suspect]
     Indication: CHRONIC MYELOID LEUKAEMIA
     Dosage: 400 MG, QD
     Route: 048
     Dates: start: 20090609
  3. NADOLOL [Concomitant]
  4. OMEPRAZOLE [Concomitant]
  5. FOLIC ACID [Concomitant]
  6. VITRON-C [Concomitant]
  7. MAGNESIUM [Concomitant]
  8. PRAVASTATIN [Concomitant]
  9. ASPIRIN [Concomitant]
  10. ALLOPURINOL [Concomitant]
  11. Q10 [Concomitant]

REACTIONS (4)
  - ANAEMIA [None]
  - HAEMORRHAGE [None]
  - BLINDNESS [None]
  - MELAENA [None]
